FAERS Safety Report 15111568 (Version 1)
Quarter: 2018Q2

REPORT INFORMATION
  Report Type: Report from Study
  Country: CN (occurrence: CN)
  Receive Date: 20180630
  Receipt Date: 20180630
  Transmission Date: 20180711
  Serious: Yes (Other)
  Sender: FDA-Public Use
  Company Number: CN-ROCHE-2146806

PATIENT

DRUGS (2)
  1. OXALIPLATIN. [Suspect]
     Active Substance: OXALIPLATIN
     Indication: GASTRIC CANCER
     Dosage: FOR 2 HOURS ON DAY1
     Route: 041
  2. CAPECITABINE. [Suspect]
     Active Substance: CAPECITABINE
     Indication: GASTRIC CANCER
     Dosage: IN THE MORNING AND EVENING ON DAY 1- DAY 14 IN A CYCLE OF 3 WEEKS
     Route: 048

REACTIONS (2)
  - Bone marrow failure [Unknown]
  - Renal impairment [Unknown]
